FAERS Safety Report 9855817 (Version 2)
Quarter: 2014Q1

REPORT INFORMATION
  Report Type: Spontaneous
  Country: CA (occurrence: CA)
  Receive Date: 20140130
  Receipt Date: 20140130
  Transmission Date: 20141002
  Serious: Yes (Other)
  Sender: FDA-Public Use
  Company Number: PHHY2014CA007727

PATIENT
  Age: 35 Year
  Sex: Female
  Weight: 66 kg

DRUGS (13)
  1. OXYTOCIN [Suspect]
     Indication: UTERINE CONTRACTIONS DURING PREGNANCY
     Dosage: UNK
     Route: 042
  2. L-THYROXIN ? 1 A PHARMA [Suspect]
     Dosage: 125 UG, QD
  3. SALMETEROL [Suspect]
     Route: 055
  4. OMEPRAZOLE [Suspect]
     Dosage: 40 MG, QD
  5. FLUTICASONE [Suspect]
  6. AZITHROMYCIN [Suspect]
     Route: 055
  7. SALBUTAMOL [Suspect]
     Route: 055
  8. TOBRAMYCIN [Suspect]
     Route: 055
  9. BUPIVACAINE [Suspect]
     Dosage: 1.8 ML, UNK
  10. MORPHINE [Suspect]
     Dosage: 100 UG, UNK
  11. FENTANYL [Suspect]
     Dosage: 10 UG, UNK
  12. PHENYLEPHRINE [Suspect]
     Dosage: 650 UG, UNK
     Route: 042
  13. ONDANSETRON [Suspect]
     Dosage: 4 MG, UNK
     Route: 042

REACTIONS (3)
  - Ventilation perfusion mismatch [Recovering/Resolving]
  - Hypoxia [Recovering/Resolving]
  - Exposure during pregnancy [Unknown]
